FAERS Safety Report 22528484 (Version 1)
Quarter: 2023Q2

REPORT INFORMATION
  Report Type: Spontaneous
  Country: PT (occurrence: PT)
  Receive Date: 20230607
  Receipt Date: 20230607
  Transmission Date: 20230721
  Serious: Yes (Death, Life-Threatening, Hospitalization, Other)
  Sender: FDA-Public Use
  Company Number: PT-Apnar-000138

PATIENT
  Age: 6 Decade
  Sex: Male

DRUGS (1)
  1. BUPROPION HYDROCHLORIDE [Suspect]
     Active Substance: BUPROPION HYDROCHLORIDE
     Indication: Major depression
     Dosage: CUMULATIVE DOSE: 2100 MG,  BY NASAL INSUFFLATION OF CRASHED TABLETS.
     Route: 045

REACTIONS (7)
  - Acute myocardial infarction [Unknown]
  - Overdose [Unknown]
  - Cardio-respiratory arrest [Fatal]
  - Sinus tachycardia [Unknown]
  - Incorrect route of product administration [Unknown]
  - Psychomotor hyperactivity [Unknown]
  - Intentional product misuse [Fatal]
